FAERS Safety Report 6368059-2 (Version None)
Quarter: 2009Q3

REPORT INFORMATION
  Report Type: 
  Country: None (occurrence: None)
  Receive Date: 20090922
  Receipt Date: 20090911
  Transmission Date: 20100115
  Serious: Yes (Hospitalization)
  Sender: FDA-Public Use
  Company Number: US-ROCHE-656028

PATIENT

DRUGS (1)
  1. TAMIFLU [Suspect]
     Indication: INFLUENZA
     Dosage: FREQUENCY: EVERY 12 HOURS
     Route: 048
     Dates: start: 20090905

REACTIONS (1)
  - ACUTE RESPIRATORY DISTRESS SYNDROME [None]
